FAERS Safety Report 5322177-6 (Version None)
Quarter: 2007Q2

REPORT INFORMATION
  Report Type: 
  Country: None (occurrence: None)
  Receive Date: 20070511
  Receipt Date: 20070508
  Transmission Date: 20071010
  Serious: Yes (Other)
  Sender: FDA-Public Use
  Company Number: US-BAYER-200710578BCC

PATIENT
  Age: 52 Year
  Sex: Male
  Weight: 116 kg

DRUGS (1)
  1. ALEVE [Suspect]
     Indication: JOINT INJURY
     Dosage: UNIT DOSE: 220 MG
     Route: 048

REACTIONS (6)
  - ABDOMINAL PAIN UPPER [None]
  - ASTHENIA [None]
  - DIZZINESS [None]
  - FLATULENCE [None]
  - HAEMORRHAGE [None]
  - MALAISE [None]
